FAERS Safety Report 20718908 (Version 1)
Quarter: 2022Q2

REPORT INFORMATION
  Report Type: Other
  Country: CA (occurrence: CA)
  Receive Date: 20220418
  Receipt Date: 20220418
  Transmission Date: 20220721
  Serious: Yes (Disabling)
  Sender: FDA-Public Use
  Company Number: CA-APOTEX-2022AP005960

PATIENT
  Age: 80 Year
  Sex: Male

DRUGS (1)
  1. ALBUTEROL [Suspect]
     Active Substance: ALBUTEROL
     Indication: Asthma
     Dosage: 100 MICROGRAM, 2 EVERY 4 HOURS

REACTIONS (3)
  - Product substitution issue [Recovered/Resolved]
  - Palpitations [Recovered/Resolved]
  - Therapeutic product ineffective [Recovered/Resolved]
